FAERS Safety Report 8909919 (Version 3)
Quarter: 2013Q1

REPORT INFORMATION
  Report Type: Spontaneous
  Country: US (occurrence: US)
  Receive Date: 20121115
  Receipt Date: 20130328
  Transmission Date: 20140127
  Serious: Yes (Death)
  Sender: FDA-Public Use
  Company Number: US-PFIZER INC-2012283701

PATIENT
  Sex: Male

DRUGS (4)
  1. NORVASC [Suspect]
     Dosage: UNK,DAILY
  2. NORVASC [Suspect]
     Dosage: 10 MG, UNK
  3. VIAGRA [Suspect]
     Indication: ERECTILE DYSFUNCTION
     Dosage: UNK, AS NEEDED
  4. VIAGRA [Suspect]
     Dosage: 100 MG, UNK

REACTIONS (3)
  - Death [Fatal]
  - Headache [Not Recovered/Not Resolved]
  - Back pain [Unknown]
